FAERS Safety Report 12744298 (Version 4)
Quarter: 2017Q1

REPORT INFORMATION
  Report Type: Spontaneous
  Country: US (occurrence: US)
  Receive Date: 20160914
  Receipt Date: 20170206
  Transmission Date: 20170428
  Serious: No
  Sender: FDA-Public Use
  Company Number: US-LUNDBECK-DKLU2019130

PATIENT
  Age: 60 Year
  Sex: Male

DRUGS (4)
  1. NORTHERA [Suspect]
     Active Substance: DROXIDOPA
     Indication: PRODUCT USED FOR UNKNOWN INDICATION
     Dosage: TITRATION, SCHEDULE C
     Route: 065
     Dates: start: 20160813
  2. NORTHERA [Suspect]
     Active Substance: DROXIDOPA
     Dosage: SCHEDULE C TITRATION COMPLETE
     Route: 065
  3. NORTHERA [Suspect]
     Active Substance: DROXIDOPA
     Dosage: SCHEDULE C (TITRATION COMPLETE)
     Route: 065
     Dates: end: 20160831
  4. NORTHERA [Suspect]
     Active Substance: DROXIDOPA
     Route: 065
     Dates: start: 20160913

REACTIONS (17)
  - Depression [Recovered/Resolved]
  - Insomnia [Unknown]
  - Blood pressure increased [Unknown]
  - Eye movement disorder [Recovering/Resolving]
  - Anxiety [Unknown]
  - Muscular weakness [Unknown]
  - Heart rate increased [Unknown]
  - Nausea [Recovering/Resolving]
  - Tetany [Not Recovered/Not Resolved]
  - Raynaud^s phenomenon [Unknown]
  - Asthenia [Recovering/Resolving]
  - Malaise [Unknown]
  - Intentional underdose [Unknown]
  - Musculoskeletal stiffness [Recovering/Resolving]
  - Muscle spasms [Unknown]
  - Panic attack [Recovered/Resolved]
  - Hyperhidrosis [Unknown]

NARRATIVE: CASE EVENT DATE: 201608
